FAERS Safety Report 8556874-6 (Version None)
Quarter: 2012Q3

REPORT INFORMATION
  Report Type: 
  Country: None (occurrence: None)
  Receive Date: 20120801
  Receipt Date: 20120724
  Transmission Date: 20120928
  Serious: Yes (Other)
  Sender: FDA-Public Use
  Company Number: CA-ROCHE-1063670

PATIENT
  Sex: Female

DRUGS (5)
  1. PREDNISONE [Concomitant]
     Route: 048
  2. SYMBICORT [Concomitant]
  3. BIAXIN (CANADA) [Concomitant]
  4. XOLAIR [Suspect]
     Indication: ASTHMA
     Route: 058
     Dates: start: 20111123
  5. SINGULAIR [Concomitant]

REACTIONS (2)
  - DYSPNOEA [None]
  - CHEST PAIN [None]
